FAERS Safety Report 24441193 (Version 2)
Quarter: 2024Q4

REPORT INFORMATION
  Report Type: Spontaneous
  Country: US (occurrence: US)
  Receive Date: 20241016
  Receipt Date: 20241017
  Transmission Date: 20250115
  Serious: No
  Sender: ROCHE
  Company Number: US-ROCHE-3469919

PATIENT
  Sex: Male
  Weight: 95.25 kg

DRUGS (1)
  1. HEMLIBRA [Suspect]
     Active Substance: EMICIZUMAB-KXWH
     Indication: Factor VIII deficiency
     Dosage: STRENGTH : 150 MG/ML
     Route: 058
     Dates: start: 201208

REACTIONS (2)
  - Mouth haemorrhage [Unknown]
  - Weight increased [Unknown]
